FAERS Safety Report 7680927-8 (Version None)
Quarter: 2011Q3

REPORT INFORMATION
  Report Type: 
  Country: None (occurrence: None)
  Receive Date: 20110812
  Receipt Date: 20110808
  Transmission Date: 20111222
  Serious: Yes (Other)
  Sender: FDA-Public Use
  Company Number: GB-PFIZER INC-2011181963

PATIENT
  Age: 37 Year
  Sex: Female
  Weight: 92 kg

DRUGS (3)
  1. ONDANSETRON [Suspect]
     Indication: VOMITING
     Dosage: 4 MG, UNK
     Route: 042
     Dates: start: 20110725, end: 20110725
  2. FENTANYL [Suspect]
     Indication: ANALGESIC THERAPY
     Dosage: UNK
     Route: 008
     Dates: start: 20110725, end: 20110725
  3. LEVOBUNOLOL HCL [Suspect]
     Indication: ANALGESIC THERAPY
     Dosage: UNK
     Route: 008
     Dates: start: 20110725, end: 20110725

REACTIONS (6)
  - RESTLESS LEGS SYNDROME [None]
  - CHILLS [None]
  - MUSCLE TWITCHING [None]
  - TOXICITY TO VARIOUS AGENTS [None]
  - DYSTONIA [None]
  - PRE-ECLAMPSIA [None]
